FAERS Safety Report 6295696-6 (Version None)
Quarter: 2009Q3

REPORT INFORMATION
  Report Type: 
  Country: None (occurrence: None)
  Receive Date: 20090803
  Receipt Date: 20090803
  Transmission Date: 20100115
  Serious: Yes (Life-Threatening, Hospitalization)
  Sender: FDA-Public Use
  Company Number: None

PATIENT
  Sex: Male
  Weight: 35 kg

DRUGS (1)
  1. NPLATE [Suspect]
     Indication: IDIOPATHIC THROMBOCYTOPENIC PURPURA
     Dosage: 350 MCG = 10 MCG/KG WEEKLY SQ
     Route: 058
     Dates: start: 20080912

REACTIONS (4)
  - HYPOXIA [None]
  - LUNG NEOPLASM [None]
  - LYMPHOPROLIFERATIVE DISORDER [None]
  - NON-HODGKIN'S LYMPHOMA UNSPECIFIED HISTOLOGY INDOLENT [None]
